APPROVED DRUG PRODUCT: DECA-DURABOLIN
Active Ingredient: NANDROLONE DECANOATE
Strength: 100MG/ML
Dosage Form/Route: INJECTABLE;INJECTION
Application: N013132 | Product #002
Applicant: WOODWARD SPECIALTY LLC
Approved: Jun 12, 1986 | RLD: No | RS: No | Type: DISCN